FAERS Safety Report 7077384-1 (Version None)
Quarter: 2010Q4

REPORT INFORMATION
  Report Type: 
  Country: None (occurrence: None)
  Receive Date: 20101101
  Receipt Date: 20101025
  Transmission Date: 20110411
  Serious: Yes (Other)
  Sender: FDA-Public Use
  Company Number: JP-MERCK-1009USA03044

PATIENT
  Age: 73 Year
  Sex: Male

DRUGS (7)
  1. EMEND [Suspect]
     Indication: PROPHYLAXIS OF NAUSEA AND VOMITING
     Route: 048
     Dates: start: 20100902, end: 20100902
  2. EMEND [Suspect]
     Route: 048
     Dates: start: 20100903, end: 20100904
  3. CISPLATIN [Concomitant]
     Route: 065
  4. ALOXI [Suspect]
     Route: 042
     Dates: start: 20100902
  5. TS-1 [Concomitant]
     Route: 065
  6. DECADRON PHOSPHATE [Concomitant]
     Route: 065
     Dates: start: 20100902, end: 20100902
  7. DECADRON PHOSPHATE [Concomitant]
     Route: 065
     Dates: start: 20100903, end: 20100903

REACTIONS (1)
  - CARDIAC FAILURE CONGESTIVE [None]
